FAERS Safety Report 6238933-6 (Version None)
Quarter: 2009Q2

REPORT INFORMATION
  Report Type: 
  Country: None (occurrence: None)
  Receive Date: 20090622
  Receipt Date: 20090622
  Transmission Date: 20091009
  Serious: Yes (Hospitalization, Other)
  Sender: FDA-Public Use
  Company Number: US-PFIZER INC-2009210574

PATIENT
  Sex: Male
  Weight: 86.168 kg

DRUGS (3)
  1. VFEND [Suspect]
     Indication: ASPERGILLOSIS
     Dates: end: 20071201
  2. LEXAPRO [Concomitant]
  3. ACETYLSALICYLIC ACID [Concomitant]

REACTIONS (5)
  - ARTHRITIS INFECTIVE [None]
  - DEMENTIA [None]
  - LIMB DISCOMFORT [None]
  - RENAL DISORDER [None]
  - STAPHYLOCOCCAL INFECTION [None]
